FAERS Safety Report 6216239-9 (Version None)
Quarter: 2009Q2

REPORT INFORMATION
  Report Type: 
  Country: None (occurrence: None)
  Receive Date: 20090605
  Receipt Date: 20090602
  Transmission Date: 20091009
  Serious: Yes (Other)
  Sender: FDA-Public Use
  Company Number: A0788845A

PATIENT
  Age: 0 Year
  Sex: Male
  Weight: 1.5 kg

DRUGS (3)
  1. COMBIVIR [Suspect]
     Indication: HIV INFECTION
     Dosage: 2TAB PER DAY
     Dates: start: 20080613
  2. RETROVIR [Suspect]
     Indication: HIV INFECTION
     Dosage: 436MG PER DAY
     Dates: start: 20081112, end: 20081112
  3. KALETRA [Suspect]
     Indication: HIV INFECTION
     Dosage: 4CAP PER DAY
     Dates: start: 20080613

REACTIONS (2)
  - DRUG EXPOSURE DURING PREGNANCY [None]
  - PREMATURE BABY [None]
